FAERS Safety Report 10211313 (Version 1)
Quarter: 2014Q2

REPORT INFORMATION
  Report Type: Spontaneous
  Country: FR (occurrence: FR)
  Receive Date: 20140602
  Receipt Date: 20140602
  Transmission Date: 20141212
  Serious: Yes (Hospitalization)
  Sender: FDA-Public Use
  Company Number: FR-GLAXOSMITHKLINE-B0985129A

PATIENT
  Age: 82 Year
  Sex: Female

DRUGS (3)
  1. ARIXTRA [Suspect]
     Indication: THROMBOPHLEBITIS
     Route: 065
     Dates: end: 20131129
  2. PROFENID [Suspect]
     Indication: PRODUCT USED FOR UNKNOWN INDICATION
     Dosage: 25MG SINGLE DOSE
     Route: 042
     Dates: start: 20131201, end: 20131201
  3. PROTON PUMP INHIBITOR [Concomitant]
     Dosage: 40MG UNKNOWN
     Route: 065

REACTIONS (2)
  - Gastrointestinal haemorrhage [Unknown]
  - Haematemesis [Unknown]
